FAERS Safety Report 10977587 (Version 1)
Quarter: 2015Q1

REPORT INFORMATION
  Report Type: Spontaneous
  Country: GB (occurrence: None)
  Receive Date: 20150330
  Receipt Date: 20150330
  Transmission Date: 20150721
  Serious: Yes (Hospitalization)
  Sender: FDA-Public Use
  Company Number: GB2015K1288SPO

PATIENT
  Age: 88 Year
  Sex: Male

DRUGS (7)
  1. ERTAPENEM (ERTAPENEM) [Suspect]
     Active Substance: ERTAPENEM
     Indication: CHOLANGITIS
     Route: 041
     Dates: start: 20121207, end: 20121209
  2. TAZOCIN (PIPERACILLIN AND TAZOBACTAM) [Suspect]
     Active Substance: PIPERACILLIN SODIUM\TAZOBACTAM SODIUM
     Route: 042
     Dates: start: 20121210, end: 20121212
  3. AMOXICILLIN. [Suspect]
     Active Substance: AMOXICILLIN
     Indication: PNEUMONIA
     Route: 041
     Dates: start: 20121207
  4. AMOXICILLIN AND CLAVULANATE POTASSIUM [Suspect]
     Active Substance: AMOXICILLIN\CLAVULANATE POTASSIUM
     Indication: PNEUMONIA
     Route: 048
     Dates: start: 20121213, end: 20121216
  5. TRIMETHOPRIM (TRIMETHOPRIM) [Suspect]
     Active Substance: TRIMETHOPRIM
     Route: 048
     Dates: start: 20120821, end: 20120827
  6. LANSOPRAZOLE GENERIC (LANSOPRAZOLE) UNKNOWN [Suspect]
     Active Substance: LANSOPRAZOLE
     Route: 048
     Dates: end: 20121227
  7. CEFALEXIN (CEFALEXIN) [Suspect]
     Active Substance: CEPHALEXIN
     Indication: URINARY TRACT INFECTION
     Route: 048
     Dates: start: 20121204

REACTIONS (3)
  - Clostridium test positive [None]
  - Biliary sepsis [None]
  - Diarrhoea [None]

NARRATIVE: CASE EVENT DATE: 20121207
